FAERS Safety Report 4620166-8 (Version None)
Quarter: 2005Q1

REPORT INFORMATION
  Report Type: 
  Country: None (occurrence: None)
  Receive Date: 20050321
  Receipt Date: 20050321
  Transmission Date: 20050727
  Serious: Yes (Hospitalization)
  Sender: FDA-Public Use
  Company Number: None

PATIENT
  Sex: Female
  Weight: 97.5234 kg

DRUGS (6)
  1. REMODULIN [Suspect]
     Indication: PULMONARY HYPERTENSION
     Dosage: 50 NG/KG/MIN
     Dates: start: 20040101
  2. LEVOXYL [Concomitant]
  3. LASIX [Concomitant]
  4. WARFARIN SODIUM [Concomitant]
  5. ALDACTONE [Concomitant]
  6. DIGOXIN [Concomitant]

REACTIONS (3)
  - HEART RATE DECREASED [None]
  - PNEUMONIA VIRAL [None]
  - VIRAL SINUSITIS [None]
